FAERS Safety Report 9753900 (Version 2)
Quarter: 2013Q4

REPORT INFORMATION
  Report Type: Spontaneous
  Country: US (occurrence: US)
  Receive Date: 20131213
  Receipt Date: 20131213
  Transmission Date: 20140711
  Serious: No
  Sender: FDA-Public Use
  Company Number: US-GILEAD-2010-0027051

PATIENT
  Sex: Female
  Weight: 83.01 kg

DRUGS (11)
  1. LETAIRIS [Suspect]
     Indication: PULMONARY ARTERIAL HYPERTENSION
     Route: 048
     Dates: start: 20091217
  2. VENTAVIS [Concomitant]
  3. REVATIO [Concomitant]
  4. WARFARIN [Concomitant]
  5. LASIX [Concomitant]
  6. ATENOLOL [Concomitant]
  7. NORVASC [Concomitant]
  8. DIGOXIN [Concomitant]
  9. METFORMIN [Concomitant]
  10. OXYGEN [Concomitant]
  11. PRAVACHOL [Concomitant]

REACTIONS (1)
  - Menstruation irregular [Unknown]
